FAERS Safety Report 5821498-8 (Version None)
Quarter: 2008Q3

REPORT INFORMATION
  Report Type: 
  Country: None (occurrence: None)
  Receive Date: 20080724
  Receipt Date: 20080716
  Transmission Date: 20090109
  Serious: Yes (Other)
  Sender: FDA-Public Use
  Company Number: FR-ASTRAZENECA-2008CG01076

PATIENT
  Age: 25759 Day
  Sex: Male

DRUGS (14)
  1. MOPRAL [Suspect]
     Route: 048
     Dates: start: 20080106
  2. PREVISCAN [Interacting]
     Route: 048
     Dates: start: 20060601
  3. DAFALGAN [Interacting]
     Route: 048
     Dates: start: 20080111, end: 20080115
  4. MYOLASTAN [Interacting]
     Route: 048
     Dates: start: 20080111, end: 20080115
  5. ACETAMINOPHEN AND CODEINE PHOSPHATE [Interacting]
     Route: 048
     Dates: start: 20080116, end: 20080121
  6. RAMIPRIL [Concomitant]
  7. HEMIGOXINE [Concomitant]
  8. ELISOR [Concomitant]
  9. FOLIC ACID [Concomitant]
  10. KAYEXALATE [Concomitant]
  11. CALCIDIA [Concomitant]
  12. CORTANCYL [Concomitant]
  13. CORTANCYL [Concomitant]
     Dates: start: 20080116
  14. ZOLPIDEM TARTRATE [Concomitant]

REACTIONS (2)
  - DRUG INTERACTION [None]
  - INTERNATIONAL NORMALISED RATIO INCREASED [None]
